FAERS Safety Report 16349673 (Version 2)
Quarter: 2019Q2

REPORT INFORMATION
  Report Type: Spontaneous
  Country: KR (occurrence: KR)
  Receive Date: 20190523
  Receipt Date: 20190627
  Transmission Date: 20190711
  Serious: Yes (Hospitalization)
  Sender: FDA-Public Use
  Company Number: KR-009507513-1902KOR005667

PATIENT
  Age: 47 Year
  Sex: Female

DRUGS (20)
  1. KEYTRUDA [Suspect]
     Active Substance: PEMBROLIZUMAB
     Indication: CERVIX CARCINOMA
     Dosage: QUANTITY 2, DAYS: 1
     Dates: start: 20190201, end: 20190201
  2. KEYTRUDA [Suspect]
     Active Substance: PEMBROLIZUMAB
     Dosage: QUANTITY 2, DAYS: 1
     Dates: start: 20190223, end: 20190223
  3. PENIRAMIN [Concomitant]
     Dosage: QUANTITY: 2, DAYS:1
     Dates: start: 20190201, end: 20190201
  4. PLASMA LYTE (DEXTROSE (+) ELECTROLYTES (UNSPECIFIED)) [Concomitant]
     Dosage: QUANTITY: 1, DAYS:1
     Dates: start: 20190131, end: 20190131
  5. URANTAC [Concomitant]
     Dosage: QUANTITY: 1, DAYS : 1
     Dates: start: 20190201, end: 20190201
  6. SODIUM CHLORIDE. [Concomitant]
     Active Substance: SODIUM CHLORIDE
     Dosage: QUANTITY: 1, DAYS:1
     Dates: start: 20190131, end: 20190131
  7. HELIXOR [Concomitant]
     Dosage: QUANTITY: 6, DAYS:1
     Dates: start: 20190131, end: 20190131
  8. SODIUM CHLORIDE. [Concomitant]
     Active Substance: SODIUM CHLORIDE
     Dosage: QUANTITY: 2, DAYS:1
     Dates: start: 20190131, end: 20190131
  9. SODIUM CHLORIDE. [Concomitant]
     Active Substance: SODIUM CHLORIDE
     Dosage: QUANTITY: 1, DAYS:1
     Dates: start: 20190201, end: 20190201
  10. LASIX [Concomitant]
     Active Substance: FUROSEMIDE
     Dosage: QUANTITY : 1, DAYS : 1
     Dates: start: 20190201, end: 20190201
  11. LYPOARAN [Concomitant]
     Dosage: QUANTITY: 1, DAYS:2
     Dates: start: 20190131, end: 20190201
  12. KEYTRUDA [Suspect]
     Active Substance: PEMBROLIZUMAB
     Dosage: QUANTITY 2, DAYS: 1
     Dates: start: 20190322, end: 20190322
  13. KEYTRUDA [Suspect]
     Active Substance: PEMBROLIZUMAB
     Dosage: QUANTITY 2, DAYS: 1
     Dates: start: 20190411, end: 20190411
  14. KEYTRUDA [Suspect]
     Active Substance: PEMBROLIZUMAB
     Dosage: QUANTITY 2, DAYS: 1
     Dates: start: 20190502, end: 20190502
  15. PENIRAMIN [Concomitant]
     Dosage: QUANTITY: 1, DAYS:1
     Dates: start: 20190131, end: 20190131
  16. SODIUM CHLORIDE. [Concomitant]
     Active Substance: SODIUM CHLORIDE
     Dosage: QUANTITY: 3, DAYS:1
     Dates: start: 20190201, end: 20190201
  17. TAMIPOOL [Concomitant]
     Active Substance: VITAMINS
     Dosage: QUANTITY: 1 DAYS: 1
     Dates: start: 20190131, end: 20190131
  18. KEYTRUDA [Suspect]
     Active Substance: PEMBROLIZUMAB
     Dosage: QUANTITY 2, DAYS: 1
     Dates: start: 20190523, end: 20190523
  19. KEYTRUDA [Suspect]
     Active Substance: PEMBROLIZUMAB
     Dosage: QUANTITY 2, DAYS: 1
     Dates: start: 20190613, end: 20190613
  20. CHOLECALCIFEROL [Concomitant]
     Active Substance: CHOLECALCIFEROL
     Dosage: QUANTITY : 1, DAYS : 1
     Dates: start: 20190201, end: 20190201

REACTIONS (7)
  - Adverse event [Unknown]
  - Adverse event [Unknown]
  - Product use in unapproved indication [Unknown]
  - Adverse event [Unknown]
  - Adverse event [Unknown]
  - Adverse event [Unknown]
  - Inappropriate schedule of product administration [Unknown]

NARRATIVE: CASE EVENT DATE: 201902
